FAERS Safety Report 24263360 (Version 1)
Quarter: 2024Q3

REPORT INFORMATION
  Report Type: Spontaneous
  Country: US (occurrence: None)
  Receive Date: 20240828
  Receipt Date: 20240828
  Transmission Date: 20241016
  Serious: No
  Sender: Public
  Company Number: None

PATIENT
  Age: 34 Year
  Sex: Male
  Weight: 102.51 kg

DRUGS (1)
  1. CABENUVA [Suspect]
     Active Substance: CABOTEGRAVIR\RILPIVIRINE
     Indication: HIV infection
     Dosage: OTHER FREQUENCY : Q60 DAYS;?
     Route: 030
     Dates: start: 20240318, end: 20240828

REACTIONS (3)
  - Arthralgia [None]
  - Joint swelling [None]
  - Post procedural complication [None]

NARRATIVE: CASE EVENT DATE: 20240809
